FAERS Safety Report 22916335 (Version 9)
Quarter: 2025Q2

REPORT INFORMATION
  Report Type: Spontaneous
  Country: US (occurrence: US)
  Receive Date: 20230907
  Receipt Date: 20250624
  Transmission Date: 20250717
  Serious: No
  Sender: SANOFI AVENTIS
  Company Number: US-SA-SAC20230904000965

PATIENT
  Age: 71 Year
  Sex: Female

DRUGS (4)
  1. DUPILUMAB [Suspect]
     Active Substance: DUPILUMAB
     Indication: Dermatitis atopic
     Route: 058
     Dates: start: 20230824, end: 20230824
  2. DUPILUMAB [Suspect]
     Active Substance: DUPILUMAB
     Indication: Idiopathic urticaria
     Dosage: 300 MG, QOW
     Route: 058
     Dates: start: 202309
  3. DUPILUMAB [Suspect]
     Active Substance: DUPILUMAB
     Indication: Eczema
  4. COVID-19 VACCINE [Concomitant]
     Route: 065

REACTIONS (15)
  - Injection site mass [Unknown]
  - Nasal congestion [Unknown]
  - Poor quality sleep [Not Recovered/Not Resolved]
  - Oropharyngeal pain [Unknown]
  - Pruritus [Recovering/Resolving]
  - Insomnia [Not Recovered/Not Resolved]
  - Rash pruritic [Recovered/Resolved]
  - Initial insomnia [Not Recovered/Not Resolved]
  - Middle insomnia [Unknown]
  - Dry eye [Unknown]
  - Dermatitis atopic [Unknown]
  - Rash macular [Recovered/Resolved]
  - Rash [Recovering/Resolving]
  - Rash [Recovering/Resolving]
  - Product use in unapproved indication [Unknown]

NARRATIVE: CASE EVENT DATE: 20230801
